FAERS Safety Report 20909859 (Version 17)
Quarter: 2023Q2

REPORT INFORMATION
  Report Type: Report from Study
  Country: US (occurrence: US)
  Receive Date: 20220603
  Receipt Date: 20230623
  Transmission Date: 20230721
  Serious: Yes (Hospitalization)
  Sender: FDA-Public Use
  Company Number: US-NOVARTISTESTPH-NVSC2022US126463

PATIENT
  Age: 51 Year
  Sex: Female
  Weight: 107.48 kg

DRUGS (10)
  1. TREPROSTINIL [Suspect]
     Active Substance: TREPROSTINIL
     Indication: Pulmonary arterial hypertension
     Dosage: (20 NG/KG/ MIN) CONT
     Route: 058
     Dates: start: 20220525
  2. TREPROSTINIL [Suspect]
     Active Substance: TREPROSTINIL
     Dosage: (29 NG/KG/ MIN) CONT
     Route: 058
  3. TREPROSTINIL [Suspect]
     Active Substance: TREPROSTINIL
     Dosage: (37 NG/KG/ MIN) CONT
     Route: 058
  4. TREPROSTINIL [Suspect]
     Active Substance: TREPROSTINIL
     Dosage: 40 NG/KG/ MI N CONT
     Route: 058
  5. TREPROSTINIL [Suspect]
     Active Substance: TREPROSTINIL
     Dosage: 50 NG/KG/ MIN CONT
     Route: 058
  6. TREPROSTINIL [Suspect]
     Active Substance: TREPROSTINIL
     Dosage: 50 NG/KG/ MIN CONT
     Route: 058
  7. OPSUMIT [Suspect]
     Active Substance: MACITENTAN
     Indication: Product used for unknown indication
     Dosage: UNK
     Route: 065
  8. SILDENAFIL CITRATE [Concomitant]
     Active Substance: SILDENAFIL CITRATE
     Indication: Product used for unknown indication
     Dosage: UNK
     Route: 065
  9. ADEMPAS [Concomitant]
     Active Substance: RIOCIGUAT
     Indication: Product used for unknown indication
     Dosage: 1.5 MG, TID
     Route: 065
  10. PREDNISONE [Concomitant]
     Active Substance: PREDNISONE
     Indication: Product used for unknown indication
     Dosage: UNK
     Route: 065

REACTIONS (28)
  - Pneumonia [Unknown]
  - Oxygen saturation decreased [Unknown]
  - Back pain [Unknown]
  - Pain [Unknown]
  - Neuralgia [Unknown]
  - Weight increased [Unknown]
  - Skin burning sensation [Unknown]
  - Migraine [Unknown]
  - COVID-19 [Unknown]
  - White blood cell count increased [Unknown]
  - Influenza like illness [Unknown]
  - Pyrexia [Unknown]
  - Erythema [Unknown]
  - Peripheral swelling [Unknown]
  - Fluid retention [Unknown]
  - Hypervolaemia [Unknown]
  - Pain in jaw [Unknown]
  - Swelling [Unknown]
  - Nausea [Unknown]
  - Dyspnoea [Unknown]
  - Headache [Unknown]
  - Pruritus [Unknown]
  - Arthralgia [Unknown]
  - Administration site warmth [Unknown]
  - Injection site erythema [Unknown]
  - Infusion site pain [Unknown]
  - Infusion site erythema [Unknown]
  - Oedema [Unknown]

NARRATIVE: CASE EVENT DATE: 20220627
